FAERS Safety Report 19723568 (Version 1)
Quarter: 2021Q3

REPORT INFORMATION
  Report Type: Spontaneous
  Country: US (occurrence: US)
  Receive Date: 20210820
  Receipt Date: 20210820
  Transmission Date: 20211014
  Serious: No
  Sender: FDA-Public Use
  Company Number: US-CELLTRION INC.-2021US009958

PATIENT

DRUGS (1)
  1. TRUXIMA [Suspect]
     Active Substance: RITUXIMAB-ABBS
     Indication: PEMPHIGOID
     Dosage: 375 MG, WEEKLY X 4 WEEKS
     Dates: start: 20210625, end: 20210625

REACTIONS (1)
  - Off label use [Unknown]
